FAERS Safety Report 6961363-6 (Version None)
Quarter: 2010Q3

REPORT INFORMATION
  Report Type: 
  Country: None (occurrence: None)
  Receive Date: 20100901
  Receipt Date: 20100826
  Transmission Date: 20110219
  Serious: Yes (Other)
  Sender: FDA-Public Use
  Company Number: B0671952A

PATIENT
  Age: 65 Year
  Sex: Male

DRUGS (4)
  1. REQUIP XL [Suspect]
     Indication: PARKINSON'S DISEASE
     Dosage: 12MG PER DAY
     Route: 048
     Dates: start: 20100801, end: 20100826
  2. REQUIP [Concomitant]
     Indication: PARKINSON'S DISEASE
     Dosage: 4MG THREE TIMES PER DAY
     Route: 048
     Dates: start: 20100801
  3. ENTACAPONE [Concomitant]
     Route: 065
  4. CARBIDOPA AND LEVODOPA [Concomitant]
     Route: 065

REACTIONS (10)
  - ABDOMINAL PAIN UPPER [None]
  - BALANCE DISORDER [None]
  - FEAR [None]
  - HEADACHE [None]
  - IMMOBILE [None]
  - INSOMNIA [None]
  - PALPITATIONS [None]
  - PARALYSIS [None]
  - RESTLESSNESS [None]
  - TREMOR [None]
